FAERS Safety Report 9189875 (Version 1)
Quarter: 2013Q1

REPORT INFORMATION
  Report Type: Spontaneous
  Country: US (occurrence: None)
  Receive Date: 20120703
  Receipt Date: 20120703
  Transmission Date: 20140127
  Serious: Yes (Other)
  Sender: FDA-Public Use
  Company Number: PHEH2012US005537

PATIENT
  Age: 47 Year
  Sex: Female
  Weight: 140 kg

DRUGS (1)
  1. GILENYA (FTY) CAPSULE, 0.5MG [Suspect]
     Route: 048
     Dates: start: 20110512, end: 201203

REACTIONS (1)
  - Hepatic enzyme increased [None]
